FAERS Safety Report 25008970 (Version 3)
Quarter: 2025Q1

REPORT INFORMATION
  Report Type: Spontaneous
  Country: KR (occurrence: KR)
  Receive Date: 20250225
  Receipt Date: 20250321
  Transmission Date: 20250409
  Serious: Yes (Hospitalization)
  Sender: SAMSUNG BIOEPIS
  Company Number: KR-SAMSUNG BIOEPIS-SB-2025-06909

PATIENT
  Age: 64 Year
  Sex: Female
  Weight: 47.5 kg

DRUGS (30)
  1. TRASTUZUMAB [Suspect]
     Active Substance: TRASTUZUMAB
     Indication: Gallbladder cancer
     Route: 042
     Dates: start: 20241128
  2. NIVOLUMAB [Suspect]
     Active Substance: NIVOLUMAB
     Indication: Gallbladder cancer
     Route: 042
     Dates: start: 20241128
  3. GEMCITABINE [Suspect]
     Active Substance: GEMCITABINE
     Indication: Gallbladder cancer
     Dosage: Q3W D1, D8;
     Route: 042
     Dates: start: 20241128, end: 20250213
  4. CISPLATIN [Suspect]
     Active Substance: CISPLATIN
     Indication: Gallbladder cancer
     Dosage: Q3W D1, D8;
     Route: 042
     Dates: start: 20241128, end: 20250213
  5. URSA DAEWOONG [Concomitant]
     Indication: Product used for unknown indication
     Dates: start: 20241106, end: 20241205
  6. URSA DAEWOONG [Concomitant]
     Dates: start: 20241205, end: 20250114
  7. URSA DAEWOONG [Concomitant]
     Dates: start: 20250116, end: 20250122
  8. URSA DAEWOONG [Concomitant]
     Route: 048
     Dates: start: 20250123
  9. DEXAMETHASONE DAEWON [Concomitant]
     Indication: Product used for unknown indication
     Dates: start: 20241106, end: 20241106
  10. DEXAMETHASONE DAEWON [Concomitant]
     Route: 042
     Dates: start: 20241128
  11. PHENIL [CHLORPHENAMINE MALEATE] [Concomitant]
     Indication: Product used for unknown indication
     Dates: start: 20241106, end: 20241106
  12. PHENIL [CHLORPHENAMINE MALEATE] [Concomitant]
     Route: 042
     Dates: start: 20241128
  13. HUONS HEPARIN SODIUM [Concomitant]
     Indication: Product used for unknown indication
     Route: 042
     Dates: start: 20241128
  14. AKYNZEO (NETUPITANT\PALONOSETRON HYDROCHLORIDE) [Concomitant]
     Active Substance: NETUPITANT\PALONOSETRON HYDROCHLORIDE
     Indication: Product used for unknown indication
     Dosage: CAPSULE;
     Route: 048
     Dates: start: 20241128
  15. PROPRANOLOL HYDROCHLORIDE [Concomitant]
     Active Substance: PROPRANOLOL HYDROCHLORIDE
     Indication: Product used for unknown indication
     Dates: start: 20241230, end: 20250114
  16. PROPRANOLOL HYDROCHLORIDE [Concomitant]
     Active Substance: PROPRANOLOL HYDROCHLORIDE
     Route: 048
     Dates: start: 20250116
  17. DULACKHAN [Concomitant]
     Indication: Product used for unknown indication
     Dosage: POUCH;
     Dates: start: 20241230, end: 20250114
  18. DULACKHAN [Concomitant]
     Dosage: POUCH;
     Route: 048
     Dates: start: 20250116
  19. CHOLIACEN [Concomitant]
     Indication: Product used for unknown indication
     Dates: start: 20250103, end: 20250114
  20. CHOLIACEN [Concomitant]
     Route: 048
     Dates: start: 20250119
  21. PANTO K [Concomitant]
     Indication: Product used for unknown indication
     Dates: start: 20250103, end: 20250114
  22. PANTO K [Concomitant]
     Route: 048
     Dates: start: 20250119
  23. CREZET [Concomitant]
     Indication: Product used for unknown indication
     Dosage: 10/5MG;
     Dates: start: 20250103, end: 20250114
  24. CREZET [Concomitant]
     Dosage: 10/5MG;
     Route: 048
     Dates: start: 20250119
  25. HERBALS [Concomitant]
     Active Substance: HERBALS
     Indication: Product used for unknown indication
     Dates: start: 20250103, end: 20250114
  26. HERBALS [Concomitant]
     Active Substance: HERBALS
     Dates: start: 20250116, end: 20250118
  27. HERBALS [Concomitant]
     Active Substance: HERBALS
     Route: 048
     Dates: start: 20250119
  28. ROWACHOL [CAMPHOR;ESSENTIAL OILS NOS;MENTHOL;PINUS MUGO OIL] [Concomitant]
     Indication: Product used for unknown indication
     Dates: start: 20250113, end: 20250114
  29. ROWACHOL [CAMPHOR;ESSENTIAL OILS NOS;MENTHOL;PINUS MUGO OIL] [Concomitant]
     Dates: start: 20250116, end: 20250122
  30. ROWACHOL [CAMPHOR;ESSENTIAL OILS NOS;MENTHOL;PINUS MUGO OIL] [Concomitant]
     Route: 048
     Dates: start: 20250131

REACTIONS (3)
  - Cholangitis [Not Recovered/Not Resolved]
  - Pyrexia [Recovered/Resolved]
  - Off label use [Unknown]

NARRATIVE: CASE EVENT DATE: 20250213
